FAERS Safety Report 20073132 (Version 3)
Quarter: 2024Q3

REPORT INFORMATION
  Report Type: Report from Study
  Country: KR (occurrence: KR)
  Receive Date: 20211116
  Receipt Date: 20240927
  Transmission Date: 20241017
  Serious: Yes (Life-Threatening)
  Sender: GLAXOSMITHKLINE
  Company Number: KR-TAKEDA-2021TJP119092

PATIENT

DRUGS (9)
  1. NIRAPARIB [Suspect]
     Active Substance: NIRAPARIB
     Indication: Product used for unknown indication
     Dosage: 200 MILLIGRAM, QD
     Route: 048
     Dates: start: 20211007, end: 20211020
  2. NIRAPARIB [Suspect]
     Active Substance: NIRAPARIB
     Dosage: 100 MILLIGRAM, QD
     Route: 048
     Dates: start: 20211111
  3. D3 BASE [Concomitant]
     Indication: Prophylaxis
     Dosage: 2000 INTERNATIONAL UNIT, QD
     Route: 048
     Dates: start: 20210805
  4. NASERON OD [Concomitant]
     Indication: Prophylaxis
     Dosage: 1 TABLET QD
     Route: 048
     Dates: start: 20211007, end: 20211020
  5. FILGRASTIM [Concomitant]
     Active Substance: FILGRASTIM
     Indication: Neutropenia
     Dosage: 150 MICROGRAM, QD
     Route: 058
     Dates: start: 20211026, end: 20211026
  6. FILGRASTIM [Concomitant]
     Active Substance: FILGRASTIM
     Dosage: 300 MICROGRAM, QD
     Route: 058
     Dates: start: 20211104, end: 20211104
  7. LEVOFLOXACIN [Concomitant]
     Active Substance: LEVOFLOXACIN
     Indication: Prophylaxis
     Dosage: 500 MILLIGRAM, QD
     Route: 048
     Dates: start: 20211026, end: 20211030
  8. PENIRAMIN [Concomitant]
     Indication: Prophylaxis
     Dosage: 1 UNK, QD (1 AMPOULE, QD)
     Route: 042
     Dates: start: 20211026, end: 20211026
  9. DEXAMETHASONE [Concomitant]
     Active Substance: DEXAMETHASONE
     Indication: Prophylaxis
     Dosage: 5 MILLIGRAM, QD
     Route: 042

REACTIONS (1)
  - Platelet count decreased [Recovered/Resolved]

NARRATIVE: CASE EVENT DATE: 20211025
